FAERS Safety Report 24977908 (Version 3)
Quarter: 2025Q1

REPORT INFORMATION
  Report Type: Spontaneous
  Country: JP (occurrence: JP)
  Receive Date: 20250217
  Receipt Date: 20250328
  Transmission Date: 20250409
  Serious: Yes (Other)
  Sender: REGENERON
  Company Number: JP-REGENERON-20250200577

PATIENT
  Age: 33 Year
  Sex: Female

DRUGS (1)
  1. LIBTAYO [Suspect]
     Active Substance: CEMIPLIMAB-RWLC
     Indication: Cervix carcinoma recurrent

REACTIONS (4)
  - Metastases to central nervous system [Unknown]
  - Cancer pain [Unknown]
  - Tumour associated fever [Unknown]
  - Malaise [Unknown]
